FAERS Safety Report 11025595 (Version 1)
Quarter: 2015Q2

REPORT INFORMATION
  Report Type: Spontaneous
  Country: US (occurrence: None)
  Receive Date: 20150413
  Receipt Date: 20150413
  Transmission Date: 20150821
  Serious: No
  Sender: FDA-Public Use
  Company Number: None

PATIENT
  Age: 84 Year
  Sex: Female
  Weight: 45.36 kg

DRUGS (6)
  1. PREDNISONE 5MG [Suspect]
     Active Substance: PREDNISONE
     Indication: CHRONIC OBSTRUCTIVE PULMONARY DISEASE
     Dosage: 30 PILLS 1 PER DAY MOUTH
     Route: 048
     Dates: start: 20150305, end: 20150312
  2. LEVOTHYROXINE [Concomitant]
     Active Substance: LEVOTHYROXINE
  3. PRESERVISION [Concomitant]
     Active Substance: MINERALS\VITAMINS
  4. BIOTIN [Concomitant]
     Active Substance: BIOTIN
  5. LOSARTAN [Concomitant]
     Active Substance: LOSARTAN
  6. NEBULIZER INHALER [Concomitant]

REACTIONS (1)
  - Pain [None]

NARRATIVE: CASE EVENT DATE: 20150306
